FAERS Safety Report 8648083 (Version 3)
Quarter: 2012Q4

REPORT INFORMATION
  Report Type: Report from Study
  Country: DE (occurrence: DE)
  Receive Date: 20120703
  Receipt Date: 20121018
  Transmission Date: 20130627
  Serious: Yes (Hospitalization, Other)
  Sender: FDA-Public Use
  Company Number: DE-PFIZER INC-2012156360

PATIENT
  Age: 58 Year
  Sex: Female
  Weight: 110 kg

DRUGS (8)
  1. GENOTROPIN [Suspect]
     Indication: GROWTH HORMONE DEFICIENCY
     Dosage: 0.5 mg, 1x/day
     Dates: start: 200711
  2. LANTUS [Concomitant]
     Indication: DIABETES MELLITUS
     Dosage: 16 IU, 0, 30 IU
     Dates: start: 2010
  3. CALCIUM [Concomitant]
     Indication: OSTEOPOROSIS
     Dosage: UNK
     Route: 048
     Dates: start: 2010
  4. HYDROCORTISON [Concomitant]
     Indication: BLOOD CORTICOTROPHIN DECREASED
     Dosage: UNK
     Route: 048
     Dates: start: 2010
  5. VELMETIA [Concomitant]
     Indication: DIABETES MELLITUS
     Dosage: 50/1000mg, 2x/day
     Route: 048
     Dates: start: 2010
  6. LOCOL [Concomitant]
     Indication: LIPID METABOLISM DISORDER
     Dosage: 40 mg, 1x/day
     Route: 048
     Dates: start: 2010
  7. CONCOR [Concomitant]
     Indication: ESSENTIAL HYPERTENSION
     Dosage: UNK
     Route: 048
     Dates: start: 20070525
  8. RAMIPRIL [Concomitant]
     Indication: ESSENTIAL HYPERTENSION
     Dosage: 5 mg, 2x/day
     Route: 048
     Dates: start: 20070525

REACTIONS (1)
  - Pituitary tumour recurrent [Recovered/Resolved with Sequelae]
